FAERS Safety Report 24327836 (Version 1)
Quarter: 2024Q3

REPORT INFORMATION
  Report Type: Spontaneous
  Country: PL (occurrence: PL)
  Receive Date: 20240917
  Receipt Date: 20240917
  Transmission Date: 20241017
  Serious: Yes (Other)
  Sender: JOHNSON AND JOHNSON
  Company Number: None

PATIENT
  Age: 64 Year
  Sex: Female

DRUGS (7)
  1. RISPERIDONE [Suspect]
     Active Substance: RISPERIDONE
     Indication: Schizophrenia
     Dosage: THE DRUG HAS BEEN TAKEN FOR ABOUT 5 YEARS, THERAPY ONGOING
     Route: 030
  2. RISPERIDONE [Suspect]
     Active Substance: RISPERIDONE
  3. RISPERIDONE [Suspect]
     Active Substance: RISPERIDONE
  4. RISPERIDONE [Suspect]
     Active Substance: RISPERIDONE
  5. QUETIAPINE FUMARATE [Suspect]
     Active Substance: QUETIAPINE FUMARATE
     Indication: Schizophrenia
     Dosage: THE DRUG HAS BEEN TAKEN FOR ABOUT 5 YEARS, THERAPY ONGOING
     Route: 048
  6. BETASERC ODIS [Concomitant]
     Indication: Dizziness
     Dosage: THE DRUG HAS BEEN TAKEN FOR ABOUT 1,5 YEAR, THERAPY ONGOING
     Route: 048
  7. MAGNE B6 [Concomitant]
     Active Substance: MAGNESIUM\PYRIDOXINE
     Indication: Dizziness
     Dosage: THE DRUG HAS BEEN TAKEN FOR ABOUT 1,5 YEAR, THERAPY ONGOING
     Route: 048

REACTIONS (43)
  - Somnolence [Recovered/Resolved]
  - Increased appetite [Recovered/Resolved]
  - Depressed level of consciousness [Recovered/Resolved]
  - Back pain [Recovered/Resolved]
  - Tremor [Recovered/Resolved]
  - Musculoskeletal stiffness [Recovering/Resolving]
  - Dyspnoea [Recovered/Resolved]
  - Dry skin [Recovered/Resolved]
  - Constipation [Recovered/Resolved]
  - Full blood count abnormal [Recovered/Resolved]
  - Thirst [Recovering/Resolving]
  - Nasopharyngitis [Recovered/Resolved]
  - Abnormal behaviour [Recovered/Resolved]
  - Paraesthesia [Recovering/Resolving]
  - Diarrhoea [Recovered/Resolved]
  - Sleep disorder [Recovering/Resolving]
  - Epistaxis [Recovering/Resolving]
  - Emotional poverty [Recovered/Resolved]
  - Increased tendency to bruise [Recovered/Resolved]
  - Vomiting [Recovered/Resolved]
  - Heart rate increased [Recovered/Resolved]
  - Weight increased [Recovered/Resolved]
  - Myalgia [Recovered/Resolved]
  - Muscle spasms [Recovered/Resolved]
  - Blood cholesterol increased [Recovering/Resolving]
  - Urinary tract infection [Recovered/Resolved]
  - Tinnitus [Recovered/Resolved]
  - Choking [Recovering/Resolving]
  - Dyskinesia [Recovered/Resolved]
  - Blister [Recovering/Resolving]
  - Malaise [Recovering/Resolving]
  - Palpitations [Recovering/Resolving]
  - Nausea [Recovered/Resolved]
  - Dizziness [Recovering/Resolving]
  - Headache [Recovering/Resolving]
  - Oropharyngeal pain [Recovered/Resolved]
  - Pyrexia [Recovered/Resolved]
  - Chills [Recovered/Resolved]
  - Pruritus [Recovered/Resolved]
  - Hypotension [Recovered/Resolved]
  - Abdominal pain [Recovering/Resolving]
  - Hypopnoea [Recovered/Resolved]
  - Arrhythmia [Recovering/Resolving]
